FAERS Safety Report 8874123 (Version 7)
Quarter: 2014Q4

REPORT INFORMATION
  Report Type: Spontaneous
  Country: US (occurrence: US)
  Receive Date: 20121030
  Receipt Date: 20141205
  Transmission Date: 20150529
  Serious: Yes (Hospitalization, Disabling, Other)
  Sender: FDA-Public Use
  Company Number: US-009507513-1210USA007629

PATIENT
  Sex: Female
  Weight: 69.16 kg

DRUGS (7)
  1. FOSAMAX [Suspect]
     Active Substance: ALENDRONATE SODIUM
     Indication: OSTEOPOROSIS
     Dosage: 10 MG, QD
     Route: 048
     Dates: start: 20000418, end: 20010619
  2. CALCIUM (UNSPECIFIED) [Concomitant]
     Active Substance: CALCIUM
     Dosage: 600 MG, UNK
     Dates: start: 2000, end: 2014
  3. FOSAMAX [Suspect]
     Active Substance: ALENDRONATE SODIUM
     Indication: OSTEOPENIA
     Dosage: 70 MG, QW
     Route: 048
     Dates: start: 20010619, end: 2012
  4. FOSAMAX PLUS D [Suspect]
     Active Substance: ALENDRONATE SODIUM\CHOLECALCIFEROL
     Indication: OSTEOPENIA
  5. ALENDRONATE SODIUM. [Suspect]
     Active Substance: ALENDRONATE SODIUM
     Indication: OSTEOPOROSIS
     Dosage: 70 MG, UNK
     Route: 048
     Dates: start: 20100126
  6. VITAMIN D [Concomitant]
     Active Substance: CHOLECALCIFEROL
     Dosage: 1000 UNK, UNK
     Dates: start: 2000, end: 2014
  7. FOSAMAX PLUS D [Suspect]
     Active Substance: ALENDRONATE SODIUM\CHOLECALCIFEROL
     Indication: OSTEOPOROSIS
     Dosage: 70/2800 MG, QW
     Route: 048
     Dates: start: 20061002, end: 20120701

REACTIONS (43)
  - Pulmonary embolism [Unknown]
  - Depression [Unknown]
  - Blood oestrogen decreased [Unknown]
  - Stress urinary incontinence [Unknown]
  - Arthralgia [Unknown]
  - Femur fracture [Recovered/Resolved]
  - Fall [Unknown]
  - Sinus tachycardia [Unknown]
  - Smear cervix abnormal [Unknown]
  - Goitre [Unknown]
  - Ankle fracture [Unknown]
  - Diarrhoea [Unknown]
  - Fibula fracture [Unknown]
  - Intramedullary rod insertion [Unknown]
  - Low turnover osteopathy [Not Recovered/Not Resolved]
  - Anxiety [Unknown]
  - Injury [Unknown]
  - Tibia fracture [Unknown]
  - Post procedural pneumonia [Unknown]
  - Vitamin D deficiency [Unknown]
  - Cellulitis [Recovering/Resolving]
  - Breath odour [Unknown]
  - Osteoporosis [Unknown]
  - Wrist fracture [Unknown]
  - Flatulence [Unknown]
  - Peripheral arterial occlusive disease [Unknown]
  - Femur fracture [Not Recovered/Not Resolved]
  - Biopsy thyroid gland [Unknown]
  - Chronic sinusitis [Not Recovered/Not Resolved]
  - Stress fracture [Not Recovered/Not Resolved]
  - Neuralgia [Unknown]
  - Ecchymosis [Unknown]
  - Ankle fracture [Unknown]
  - Dizziness [Not Recovered/Not Resolved]
  - Oedema peripheral [Unknown]
  - Intramedullary rod insertion [Unknown]
  - Osteoporosis [Not Recovered/Not Resolved]
  - Anaemia [Unknown]
  - Ankle fracture [Unknown]
  - Paraesthesia [Unknown]
  - Infarction [Unknown]
  - Adenotonsillectomy [Unknown]
  - Eructation [Unknown]

NARRATIVE: CASE EVENT DATE: 2000
